FAERS Safety Report 19856457 (Version 1)
Quarter: 2021Q3

REPORT INFORMATION
  Report Type: Spontaneous
  Country: CA (occurrence: CA)
  Receive Date: 20210920
  Receipt Date: 20210920
  Transmission Date: 20211014
  Serious: Yes (Other)
  Sender: FDA-Public Use
  Company Number: CA-TEVA-2021-CA-1954730

PATIENT
  Age: 62 Year
  Sex: Male

DRUGS (13)
  1. ATORVASTATIN [Concomitant]
     Active Substance: ATORVASTATIN
  2. CARVEDILOL. [Concomitant]
     Active Substance: CARVEDILOL
  3. ENTRESTO [Suspect]
     Active Substance: SACUBITRIL\VALSARTAN
     Route: 065
  4. ASA [Concomitant]
     Active Substance: ASPIRIN
  5. CEFAZOLIN [Concomitant]
     Active Substance: CEFAZOLIN
  6. CLONIDINE. [Concomitant]
     Active Substance: CLONIDINE
  7. MORPHINE [Concomitant]
     Active Substance: MORPHINE
  8. VALSARTAN. [Suspect]
     Active Substance: VALSARTAN
     Route: 065
  9. ACETAMINOPHEN. [Concomitant]
     Active Substance: ACETAMINOPHEN
  10. ISMN [Concomitant]
     Active Substance: ISOSORBIDE MONONITRATE
  11. LORAZEPAM. [Concomitant]
     Active Substance: LORAZEPAM
  12. DIMENHYDRINATE. [Concomitant]
     Active Substance: DIMENHYDRINATE
  13. WARFARIN [Concomitant]
     Active Substance: WARFARIN

REACTIONS (3)
  - Renal tubular necrosis [Unknown]
  - Anuria [Unknown]
  - Blood creatinine increased [Unknown]
